FAERS Safety Report 9249231 (Version 1)
Quarter: 2013Q2

REPORT INFORMATION
  Report Type: Other
  Country: GB (occurrence: GB)
  Receive Date: 20130423
  Receipt Date: 20130423
  Transmission Date: 20140414
  Serious: Yes (Hospitalization)
  Sender: FDA-Public Use
  Company Number: GB-WATSON-2013-06783

PATIENT
  Age: 56 Year
  Sex: Female
  Weight: 70 kg

DRUGS (2)
  1. OMEPRAZOLE (UNKNOWN) [Suspect]
     Indication: GASTROENTERITIS
     Dosage: 40 MG, DAILY
     Route: 048
     Dates: start: 20130317, end: 20130402
  2. DOMPERIDONE [Concomitant]
     Indication: GASTROENTERITIS
     Dosage: UNK, UNKNOWN
     Route: 065

REACTIONS (4)
  - Electrolyte imbalance [Recovering/Resolving]
  - Lethargy [Unknown]
  - Asthenia [Unknown]
  - Decreased appetite [Unknown]
